FAERS Safety Report 19044876 (Version 1)
Quarter: 2021Q1

REPORT INFORMATION
  Report Type: Spontaneous
  Country: US (occurrence: US)
  Receive Date: 20210322
  Receipt Date: 20210322
  Transmission Date: 20210420
  Serious: Yes (Other)
  Sender: FDA-Public Use
  Company Number: US-HIKMA PHARMACEUTICALS USA INC.-US-H14001-21-53937

PATIENT
  Age: 14 Year
  Sex: Female

DRUGS (1)
  1. PREDNISONE. [Suspect]
     Active Substance: PREDNISONE
     Indication: EVANS SYNDROME
     Dosage: UNKNOWN
     Route: 065

REACTIONS (4)
  - Hypertension [Unknown]
  - Glomerulonephritis proliferative [Recovering/Resolving]
  - Acute kidney injury [Recovering/Resolving]
  - Thrombotic microangiopathy [Unknown]
